FAERS Safety Report 12667681 (Version 1)
Quarter: 2016Q3

REPORT INFORMATION
  Report Type: Report from Study
  Country: KP (occurrence: KP)
  Receive Date: 20160819
  Receipt Date: 20160819
  Transmission Date: 20161109
  Serious: Yes (Other)
  Sender: FDA-Public Use
  Company Number: KP-GUERBET LLC-1056517

PATIENT
  Age: 39 Year
  Sex: Female

DRUGS (2)
  1. LIPIODOL [Suspect]
     Active Substance: ETHIODIZED OIL
     Indication: LYMPHANGIOGRAM
     Route: 027
  2. NBCA (N-BUTYL CYANOACRYLATE) [Suspect]
     Active Substance: ENBUCRILATE
     Route: 027

REACTIONS (2)
  - Lymphocele [Unknown]
  - Product use issue [Unknown]
